FAERS Safety Report 24932805 (Version 4)
Quarter: 2025Q3

REPORT INFORMATION
  Report Type: Report from Study
  Country: TH (occurrence: TH)
  Receive Date: 20250205
  Receipt Date: 20250901
  Transmission Date: 20251021
  Serious: Yes (Other)
  Sender: EXELIXIS
  Company Number: TH-IPSEN Group, Research and Development-2024-19310

PATIENT
  Age: 71 Year
  Sex: Male

DRUGS (3)
  1. CABOMETYX [Suspect]
     Active Substance: CABOZANTINIB S-MALATE
     Indication: Hepatocellular carcinoma
     Route: 048
     Dates: start: 20240912
  2. CABOMETYX [Suspect]
     Active Substance: CABOZANTINIB S-MALATE
     Indication: Off label use
     Dosage: EVERY OTHER DAY
     Route: 048
     Dates: start: 20250529
  3. CABOMETYX [Suspect]
     Active Substance: CABOZANTINIB S-MALATE
     Dosage: DAILY
     Route: 048
     Dates: start: 20250508

REACTIONS (6)
  - Blister rupture [Unknown]
  - Scab [Unknown]
  - Gait disturbance [Unknown]
  - Blister [Unknown]
  - Costochondritis [Unknown]
  - Off label use [Unknown]

NARRATIVE: CASE EVENT DATE: 20240912
